FAERS Safety Report 11511347 (Version 1)
Quarter: 2015Q3

REPORT INFORMATION
  Report Type: Spontaneous
  Country: US (occurrence: US)
  Receive Date: 20150915
  Receipt Date: 20150915
  Transmission Date: 20151125
  Serious: Yes (Other)
  Sender: FDA-Public Use
  Company Number: US-EMD SERONO-7005361

PATIENT
  Sex: Female
  Weight: 44 kg

DRUGS (2)
  1. REBIF [Suspect]
     Active Substance: INTERFERON BETA-1A
     Indication: MULTIPLE SCLEROSIS
     Route: 058
     Dates: start: 20050110
  2. REBIF [Suspect]
     Active Substance: INTERFERON BETA-1A
     Route: 058

REACTIONS (14)
  - Gait disturbance [Not Recovered/Not Resolved]
  - Multiple sclerosis relapse [Unknown]
  - Influenza like illness [Not Recovered/Not Resolved]
  - Injection site erythema [Unknown]
  - Autonomic nervous system imbalance [Recovering/Resolving]
  - Contusion [Recovered/Resolved]
  - Weight decreased [Unknown]
  - Musculoskeletal stiffness [Not Recovered/Not Resolved]
  - Dyskinesia [Not Recovered/Not Resolved]
  - Injection site discolouration [Recovering/Resolving]
  - Rheumatoid arthritis [Recovering/Resolving]
  - Osteoporosis [Not Recovered/Not Resolved]
  - Staphylococcal infection [Unknown]
  - Anaemia [Not Recovered/Not Resolved]

NARRATIVE: CASE EVENT DATE: 2007
